FAERS Safety Report 15325720 (Version 1)
Quarter: 2018Q3

REPORT INFORMATION
  Report Type: Spontaneous
  Country: US (occurrence: US)
  Receive Date: 20180828
  Receipt Date: 20180828
  Transmission Date: 20181010
  Serious: Yes (Other)
  Sender: FDA-Public Use
  Company Number: PHEH2018US034547

PATIENT
  Sex: Male
  Weight: 18.7 kg

DRUGS (1)
  1. CEFTRIAXONE FOR INJECTION [Suspect]
     Active Substance: CEFTRIAXONE
     Indication: MASTOIDITIS
     Dosage: 310 MG, UNK
     Route: 042
     Dates: start: 20180815, end: 20180815

REACTIONS (2)
  - Hypersensitivity [Recovering/Resolving]
  - Urticaria [Recovering/Resolving]

NARRATIVE: CASE EVENT DATE: 20180815
